FAERS Safety Report 4388556-9 (Version None)
Quarter: 2004Q2

REPORT INFORMATION
  Report Type: 
  Country: None (occurrence: None)
  Receive Date: 20040624
  Receipt Date: 20040616
  Transmission Date: 20050107
  Serious: Yes (Hospitalization, Other)
  Sender: FDA-Public Use
  Company Number: 601287

PATIENT
  Age: 37 Year
  Sex: Female

DRUGS (2)
  1. POLYGAM S/D [Suspect]
     Indication: MULTIPLE SCLEROSIS
     Dosage: 30 GM; ONCE; INTRAVENOUS
     Route: 042
     Dates: start: 20040320, end: 20040320
  2. GAMMAR-P I.V. [Suspect]
     Indication: MULTIPLE SCLEROSIS
     Dates: start: 20040213, end: 20040322

REACTIONS (3)
  - HEPATITIS C [None]
  - INFUSION RELATED REACTION [None]
  - MYOMECTOMY [None]
